FAERS Safety Report 22130772 (Version 1)
Quarter: 2023Q1

REPORT INFORMATION
  Report Type: Spontaneous
  Country: FR (occurrence: FR)
  Receive Date: 20230323
  Receipt Date: 20230323
  Transmission Date: 20230418
  Serious: Yes (Hospitalization)
  Sender: FDA-Public Use
  Company Number: FR-JNJFOC-20230336431

PATIENT
  Age: 30 Year
  Sex: Female

DRUGS (7)
  1. HALDOL [Suspect]
     Active Substance: HALOPERIDOL
     Indication: Product used for unknown indication
     Dosage: 10 DROPS IN THE EVENING
     Route: 048
     Dates: start: 202302
  2. HALDOL [Suspect]
     Active Substance: HALOPERIDOL
     Dosage: 10 DROPS IN THE MORNING AND 20 DROPS IN THE EVENING
     Route: 048
     Dates: start: 2023
  3. HALDOL [Suspect]
     Active Substance: HALOPERIDOL
     Dosage: 10 DROPS IN THE MORNING AND 5 DROPS IN THE EVENING
     Route: 048
     Dates: start: 2023
  4. POLYETHYLENE GLYCOLS [Concomitant]
     Active Substance: POLYETHYLENE GLYCOLS
  5. TRIMEBUTINE MALEATE [Concomitant]
     Active Substance: TRIMEBUTINE MALEATE
  6. PANTOPRAZOLE [Concomitant]
     Active Substance: PANTOPRAZOLE
  7. SPAGULAX [Concomitant]
     Active Substance: HERBALS\PLANTAGO OVATA SEED

REACTIONS (4)
  - Apathy [Recovering/Resolving]
  - Gait inability [Recovering/Resolving]
  - Chromaturia [Recovering/Resolving]
  - Tremor [Recovering/Resolving]

NARRATIVE: CASE EVENT DATE: 20230310
